FAERS Safety Report 7604329-5 (Version None)
Quarter: 2011Q3

REPORT INFORMATION
  Report Type: 
  Country: None (occurrence: None)
  Receive Date: 20110712
  Receipt Date: 20110704
  Transmission Date: 20111222
  Serious: Yes (Other)
  Sender: FDA-Public Use
  Company Number: PHHY2011DE49299

PATIENT
  Sex: Male

DRUGS (1)
  1. LAMISIL [Suspect]
     Indication: ONYCHOMYCOSIS
     Dosage: 250 MG, PER DAY
     Route: 048
     Dates: start: 20090801, end: 20091101

REACTIONS (11)
  - HEAD DISCOMFORT [None]
  - COUGH [None]
  - DRUG INEFFECTIVE [None]
  - SNEEZING [None]
  - VISUAL IMPAIRMENT [None]
  - EPISTAXIS [None]
  - CATARACT [None]
  - LOSS OF CONSCIOUSNESS [None]
  - DERMATOPHYTOSIS [None]
  - CONVULSION [None]
  - VASOMOTOR RHINITIS [None]
